FAERS Safety Report 20595154 (Version 2)
Quarter: 2022Q2

REPORT INFORMATION
  Report Type: Report from Study
  Country: FR (occurrence: FR)
  Receive Date: 20220315
  Receipt Date: 20220503
  Transmission Date: 20220721
  Serious: Yes (Other)
  Sender: FDA-Public Use
  Company Number: FR-GLAXOSMITHKLINE-FR2022EME044482

PATIENT
  Age: 76 Year
  Sex: Female
  Weight: 65 kg

DRUGS (13)
  1. BELANTAMAB MAFODOTIN [Suspect]
     Active Substance: BELANTAMAB MAFODOTIN
     Indication: Plasma cell myeloma
     Dosage: 170 MG
     Route: 042
     Dates: start: 20200311, end: 20210622
  2. BELANTAMAB MAFODOTIN [Suspect]
     Active Substance: BELANTAMAB MAFODOTIN
     Dosage: 170 MG
     Route: 042
     Dates: start: 20201124
  3. BELANTAMAB MAFODOTIN [Suspect]
     Active Substance: BELANTAMAB MAFODOTIN
     Dosage: 170 MG
     Route: 042
     Dates: start: 20201215
  4. BELANTAMAB MAFODOTIN [Suspect]
     Active Substance: BELANTAMAB MAFODOTIN
     Dosage: 170 MG
     Route: 042
     Dates: start: 20210105
  5. BELANTAMAB MAFODOTIN [Suspect]
     Active Substance: BELANTAMAB MAFODOTIN
     Dosage: 170 MG
     Route: 042
     Dates: start: 20210126
  6. BELANTAMAB MAFODOTIN [Suspect]
     Active Substance: BELANTAMAB MAFODOTIN
     Dosage: 170 MG
     Route: 042
     Dates: start: 20210216
  7. BELANTAMAB MAFODOTIN [Suspect]
     Active Substance: BELANTAMAB MAFODOTIN
     Dosage: 170 MG
     Route: 042
     Dates: start: 20210309
  8. BELANTAMAB MAFODOTIN [Suspect]
     Active Substance: BELANTAMAB MAFODOTIN
     Dosage: 170 MG
     Route: 042
     Dates: start: 20210330
  9. BELANTAMAB MAFODOTIN [Suspect]
     Active Substance: BELANTAMAB MAFODOTIN
     Dosage: 170 MG
     Route: 042
     Dates: start: 20210420
  10. BELANTAMAB MAFODOTIN [Suspect]
     Active Substance: BELANTAMAB MAFODOTIN
     Dosage: 170 MG
     Route: 042
     Dates: start: 20210510
  11. BELANTAMAB MAFODOTIN [Suspect]
     Active Substance: BELANTAMAB MAFODOTIN
     Dosage: 170 MG
     Route: 042
     Dates: start: 20210601
  12. BELANTAMAB MAFODOTIN [Suspect]
     Active Substance: BELANTAMAB MAFODOTIN
     Dosage: 170 MG
     Route: 042
     Dates: start: 20210622
  13. MELPHALAN FLUFENAMIDE HYDROCHLORIDE [Concomitant]
     Active Substance: MELPHALAN FLUFENAMIDE HYDROCHLORIDE
     Indication: Plasma cell myeloma
     Dosage: UNK
     Dates: start: 20210817, end: 20211105

REACTIONS (4)
  - Cytopenia [Recovered/Resolved]
  - Urinary tract infection [Recovered/Resolved]
  - Humerus fracture [Recovered/Resolved]
  - Keratopathy [Recovered/Resolved]

NARRATIVE: CASE EVENT DATE: 20210216
